FAERS Safety Report 5077006-5 (Version None)
Quarter: 2006Q3

REPORT INFORMATION
  Report Type: 
  Country: None (occurrence: None)
  Receive Date: 20060810
  Receipt Date: 20060525
  Transmission Date: 20061208
  Serious: No
  Sender: FDA-Public Use
  Company Number: 2508

PATIENT
  Age: 71 Year
  Sex: Female

DRUGS (3)
  1. PAXIL [Suspect]
     Indication: DEPRESSION
     Route: 048
     Dates: start: 19940101, end: 20050101
  2. PAROXETINE HCL [Suspect]
     Indication: DEPRESSION
     Dosage: 20MG PER DAY
     Route: 048
     Dates: start: 20050101, end: 20060515
  3. PAXIL CR [Concomitant]
     Route: 048

REACTIONS (2)
  - DEPRESSION [None]
  - DRUG EFFECT DECREASED [None]
